FAERS Safety Report 14234547 (Version 5)
Quarter: 2018Q1

REPORT INFORMATION
  Report Type: Spontaneous
  Country: US (occurrence: US)
  Receive Date: 20171129
  Receipt Date: 20180206
  Transmission Date: 20180508
  Serious: No
  Sender: FDA-Public Use
  Company Number: US-B.I. PHARMACEUTICALS,INC./RIDGEFIELD-2017-BI-063074

PATIENT
  Sex: Male

DRUGS (1)
  1. COMBIVENT [Suspect]
     Active Substance: ALBUTEROL SULFATE\IPRATROPIUM BROMIDE
     Indication: ASTHMA
     Dosage: 4 PUFFS EVERY 4 HOURS AS NEEDED WHEN IN YELLOW ZONE. 6 PUFFS EVERY 20 MINUTES WHEN IN RED ZONE.
     Route: 055

REACTIONS (5)
  - Overdose [Unknown]
  - Product quality issue [Unknown]
  - Off label use [Not Recovered/Not Resolved]
  - Off label use [Unknown]
  - Product quality issue [Not Recovered/Not Resolved]

NARRATIVE: CASE EVENT DATE: 2017
